FAERS Safety Report 8088993-5 (Version None)
Quarter: 2012Q1

REPORT INFORMATION
  Report Type: 
  Country: None (occurrence: None)
  Receive Date: 20120128
  Receipt Date: 20110708
  Transmission Date: 20120608
  Serious: No
  Sender: FDA-Public Use
  Company Number: US-ABBOTT-11P-163-0837211-00

PATIENT
  Sex: Female

DRUGS (1)
  1. HUMIRA [Suspect]
     Indication: CROHN'S DISEASE
     Dates: start: 20100901

REACTIONS (6)
  - RASH MACULAR [None]
  - PRURITUS [None]
  - ERYTHEMA [None]
  - TONGUE DISORDER [None]
  - PAPULE [None]
  - PAIN [None]
